FAERS Safety Report 6093347-7 (Version None)
Quarter: 2009Q1

REPORT INFORMATION
  Report Type: 
  Country: None (occurrence: None)
  Receive Date: 20090226
  Receipt Date: 20080917
  Transmission Date: 20090719
  Serious: No
  Sender: FDA-Public Use
  Company Number: A0747927A

PATIENT
  Age: 59 Year
  Sex: Female

DRUGS (1)
  1. ZIAGEN [Suspect]
     Indication: HIV INFECTION
     Dosage: 300MG PER DAY
     Route: 048
     Dates: start: 20080912, end: 20080912

REACTIONS (1)
  - HYPERSENSITIVITY [None]
